FAERS Safety Report 11777149 (Version 1)
Quarter: 2015Q4

REPORT INFORMATION
  Report Type: Spontaneous
  Country: US (occurrence: None)
  Receive Date: 20151124
  Receipt Date: 20151124
  Transmission Date: 20160304
  Serious: No
  Sender: FDA-Public Use
  Company Number: None

PATIENT
  Age: 56 Year
  Sex: Female

DRUGS (1)
  1. HUMIRA [Suspect]
     Active Substance: ADALIMUMAB
     Indication: RHEUMATOID ARTHRITIS
     Dosage: 40MG?EVERY OTHER WEEL?SQ
     Route: 058
     Dates: start: 20151104, end: 20151120

REACTIONS (3)
  - Fatigue [None]
  - Nasopharyngitis [None]
  - Sinusitis [None]

NARRATIVE: CASE EVENT DATE: 20151105
